FAERS Safety Report 6125972-9 (Version None)
Quarter: 2009Q1

REPORT INFORMATION
  Report Type: 
  Country: None (occurrence: None)
  Receive Date: 20090320
  Receipt Date: 20090310
  Transmission Date: 20090719
  Serious: Yes (Hospitalization)
  Sender: FDA-Public Use
  Company Number: GB-AMGEN-UK312888

PATIENT
  Age: 52 Year
  Sex: Female
  Weight: 68.4 kg

DRUGS (4)
  1. NEULASTA [Suspect]
     Indication: CHEMOTHERAPY
     Route: 058
     Dates: start: 20080919
  2. FLUOROURACIL [Concomitant]
     Route: 042
     Dates: start: 20080918
  3. EPIRUBICIN [Concomitant]
     Route: 042
     Dates: start: 20080918
  4. CYCLOPHOSPHAMIDE [Concomitant]
     Route: 042
     Dates: start: 20080918

REACTIONS (4)
  - BACK PAIN [None]
  - BONE PAIN [None]
  - CHEST PAIN [None]
  - MYALGIA [None]
